FAERS Safety Report 5187768-4 (Version None)
Quarter: 2006Q4

REPORT INFORMATION
  Report Type: 
  Country: None (occurrence: None)
  Receive Date: 20061221
  Receipt Date: 20061213
  Transmission Date: 20070319
  Serious: Yes (Life-Threatening)
  Sender: FDA-Public Use
  Company Number: NL-JNJFOC-20061204642

PATIENT
  Sex: Male
  Weight: 84 kg

DRUGS (2)
  1. HALDOL [Suspect]
     Indication: PSYCHOTIC DISORDER
     Route: 065
  2. EFFEXOR XR [Interacting]
     Indication: DRUG USE FOR UNKNOWN INDICATION
     Route: 065

REACTIONS (2)
  - DRUG INTERACTION [None]
  - SUICIDAL IDEATION [None]
